FAERS Safety Report 7889562-X (Version None)
Quarter: 2011Q4

REPORT INFORMATION
  Report Type: 
  Country: None (occurrence: None)
  Receive Date: 20111103
  Receipt Date: 20110322
  Transmission Date: 20120403
  Serious: No
  Sender: FDA-Public Use
  Company Number: US-BRISTOL-MYERS SQUIBB COMPANY-15597206

PATIENT
  Age: 26 Year
  Sex: Female

DRUGS (3)
  1. KENALOG-40 [Suspect]
     Indication: RASH
     Dates: start: 20101108
  2. BENADRYL [Concomitant]
     Indication: PRURITUS
  3. LOCOID [Concomitant]
     Indication: DERMATITIS
     Dosage: CREAM
     Route: 061

REACTIONS (2)
  - FLUSHING [None]
  - URTICARIA [None]
